FAERS Safety Report 20306412 (Version 1)
Quarter: 2022Q1

REPORT INFORMATION
  Report Type: Spontaneous
  Country: US (occurrence: US)
  Receive Date: 20220106
  Receipt Date: 20220106
  Transmission Date: 20220423
  Serious: No
  Sender: FDA-Public Use
  Company Number: US-PFIZER INC-2021575986

PATIENT
  Age: 66 Year
  Sex: Female

DRUGS (4)
  1. NIFEDIPINE [Suspect]
     Active Substance: NIFEDIPINE
     Indication: Hypertension
     Dosage: 20 MG
  2. NIFEDIPINE [Suspect]
     Active Substance: NIFEDIPINE
     Dosage: 40 MG
  3. NIFEDIPINE [Suspect]
     Active Substance: NIFEDIPINE
     Dosage: 60 MG
  4. FEMARA [Concomitant]
     Active Substance: LETROZOLE

REACTIONS (3)
  - Drug ineffective [Unknown]
  - Palpitations [Unknown]
  - Weight increased [Unknown]
